FAERS Safety Report 24756589 (Version 1)
Quarter: 2024Q4

REPORT INFORMATION
  Report Type: Spontaneous
  Country: US (occurrence: US)
  Receive Date: 20241220
  Receipt Date: 20241220
  Transmission Date: 20250115
  Serious: No
  Sender: FDC LIMITED
  Company Number: US-FDC-2024USSPO00797

PATIENT

DRUGS (1)
  1. TIMOLOL MALEATE [Suspect]
     Active Substance: TIMOLOL MALEATE
     Indication: Intraocular pressure increased
     Route: 065

REACTIONS (3)
  - Eye pain [Recovered/Resolved]
  - Drug ineffective [Unknown]
  - Product substitution issue [Unknown]
